FAERS Safety Report 10108781 (Version 2)
Quarter: 2014Q2

REPORT INFORMATION
  Report Type: Spontaneous
  Country: JP (occurrence: JP)
  Receive Date: 20140425
  Receipt Date: 20140512
  Transmission Date: 20141212
  Serious: Yes (Disabling)
  Sender: FDA-Public Use
  Company Number: JP-009507513-1404JPN012365

PATIENT
  Age: 65 Year
  Sex: Male

DRUGS (2)
  1. TAPROS [Suspect]
     Indication: GLAUCOMA
     Dosage: 1 GTT, QD
     Route: 047
     Dates: start: 20130828, end: 20131010
  2. TIMOPTOL 0.5% [Concomitant]
     Dosage: UNK
     Route: 047
     Dates: start: 1988

REACTIONS (2)
  - Macular hole [Recovered/Resolved]
  - Cystoid macular oedema [Recovered/Resolved]
